FAERS Safety Report 6204523-4 (Version None)
Quarter: 2009Q2

REPORT INFORMATION
  Report Type: 
  Country: None (occurrence: None)
  Receive Date: 20090527
  Receipt Date: 20090521
  Transmission Date: 20091009
  Serious: Yes (Hospitalization, Other)
  Sender: FDA-Public Use
  Company Number: PL-WYE-H09434509

PATIENT
  Sex: Male

DRUGS (6)
  1. TEMSIROLIMUS [Suspect]
     Indication: RENAL CELL CARCINOMA
     Route: 042
     Dates: start: 20090330, end: 20090511
  2. PAMIDRONATE DISODIUM [Concomitant]
  3. KETOPROFEN [Concomitant]
  4. TRAMADOL HCL [Concomitant]
  5. BEVACIZUMAB [Suspect]
     Indication: RENAL CELL CARCINOMA
     Dosage: 680 MG ^BI-WEEKLY^
     Route: 042
     Dates: start: 20090330, end: 20090511
  6. BISOPROLOL [Concomitant]

REACTIONS (1)
  - DIARRHOEA [None]
